FAERS Safety Report 9264114 (Version 1)
Quarter: 2013Q2

REPORT INFORMATION
  Report Type: Spontaneous
  Country: US (occurrence: US)
  Receive Date: 20130430
  Receipt Date: 20130430
  Transmission Date: 20140414
  Serious: No
  Sender: FDA-Public Use
  Company Number: US-ASTRAZENECA-2013SE27139

PATIENT
  Age: 68 Year
  Sex: Male
  Weight: 108.9 kg

DRUGS (7)
  1. SYMBICORT [Suspect]
     Indication: ASTHMA
     Dosage: 160/4.5 MCG, 2 PUFFS, BID
     Route: 055
     Dates: start: 201212
  2. LISINOPRIL [Suspect]
     Route: 048
  3. LIPITOR (GEN) [Concomitant]
  4. DIAZIDE [Concomitant]
  5. ASA [Concomitant]
  6. SINGULAIR [Concomitant]
  7. RESCUE INHALER [Concomitant]

REACTIONS (1)
  - Weight increased [Unknown]
